FAERS Safety Report 7822063-3 (Version None)
Quarter: 2011Q4

REPORT INFORMATION
  Report Type: 
  Country: None (occurrence: None)
  Receive Date: 20111018
  Receipt Date: 20111012
  Transmission Date: 20120403
  Serious: Yes (Death, Other)
  Sender: FDA-Public Use
  Company Number: PHHY2011JP86414

PATIENT
  Age: 75 Year
  Sex: Male

DRUGS (19)
  1. ZOPICLONE [Concomitant]
     Dosage: 75 MG,
     Route: 048
  2. MUCOSOLVAN [Concomitant]
     Dosage: 2 MG,
     Route: 048
     Dates: start: 20100423, end: 20110902
  3. DEPAS [Concomitant]
     Dosage: 0.5 MG,
     Route: 048
     Dates: end: 20110902
  4. LIVACT [Concomitant]
     Dosage: 12.45 G,
     Route: 048
     Dates: start: 20100825, end: 20110902
  5. MAGMITT [Concomitant]
     Dosage: 990 MG,
     Route: 048
     Dates: end: 20110902
  6. TASIGNA [Suspect]
     Dosage: 200 MG
     Route: 048
     Dates: start: 20100219, end: 20100408
  7. TASIGNA [Suspect]
     Dosage: 400 MG, DAILY
     Route: 048
     Dates: start: 20101119, end: 20110826
  8. BUP-4 [Concomitant]
     Dosage: 10 MG,
     Route: 048
  9. URSO 250 [Concomitant]
     Dosage: 600 MG, DAILY
     Route: 048
     Dates: start: 20100814, end: 20110902
  10. TASIGNA [Suspect]
     Indication: CHRONIC MYELOID LEUKAEMIA
     Dosage: 400 MG, UNK
     Route: 048
     Dates: start: 20100205, end: 20100218
  11. SAWATENE [Concomitant]
     Dosage: 750 MG,
     Dates: end: 20110902
  12. FLIVAS [Concomitant]
     Dosage: 50 MG,
     Route: 048
  13. NORVASC [Concomitant]
     Dosage: 5 MG,
     Route: 048
     Dates: end: 20110902
  14. AMBROXOL HYDROCHLORIDE [Concomitant]
     Dosage: 45 MG,
     Route: 048
     Dates: end: 20110902
  15. MUCOSOLVAN [Concomitant]
     Indication: PROPHYLAXIS
     Dosage: 45 MG,
     Route: 048
     Dates: start: 20110423, end: 20110902
  16. TASIGNA [Suspect]
     Dosage: 400 MG AND 600 MG ALTERNATELY
     Dates: start: 20100924, end: 20101118
  17. ASTOMIN [Concomitant]
     Dosage: 30 MG,
     Route: 048
     Dates: end: 20110902
  18. ROHYPNOL [Concomitant]
     Dosage: 1 MG,
     Route: 048
  19. TASIGNA [Suspect]
     Dosage: 400 MG
     Route: 048
     Dates: start: 20100409, end: 20100923

REACTIONS (4)
  - ACUTE RESPIRATORY FAILURE [None]
  - ELECTROCARDIOGRAM QT PROLONGED [None]
  - BLOOD UREA INCREASED [None]
  - PNEUMONIA [None]
